FAERS Safety Report 8286574-1 (Version None)
Quarter: 2012Q2

REPORT INFORMATION
  Report Type: 
  Country: None (occurrence: None)
  Receive Date: 20120416
  Receipt Date: 20120403
  Transmission Date: 20120825
  Serious: Yes (Other)
  Sender: FDA-Public Use
  Company Number: US-SANOFI-AVENTIS-2012SA023460

PATIENT
  Age: 87 Year
  Sex: Male

DRUGS (3)
  1. LANTUS [Suspect]
     Indication: TYPE 2 DIABETES MELLITUS
     Dosage: DOSE:80 UNIT(S)
     Route: 058
  2. NOVOLOG [Suspect]
     Route: 065
  3. LANTUS [Suspect]
     Dosage: DOSE:100 UNIT(S)
     Route: 058

REACTIONS (5)
  - BLOOD GLUCOSE INCREASED [None]
  - MACULAR DEGENERATION [None]
  - MEDICATION ERROR [None]
  - BLINDNESS [None]
  - BLOOD GLUCOSE DECREASED [None]
